FAERS Safety Report 24768245 (Version 1)
Quarter: 2024Q4

REPORT INFORMATION
  Report Type: Report from Study
  Country: US (occurrence: US)
  Receive Date: 20241223
  Receipt Date: 20241223
  Transmission Date: 20250115
  Serious: Yes (Other)
  Sender: ABBVIE
  Company Number: US-ABBVIE-6055124

PATIENT
  Age: 73 Year

DRUGS (1)
  1. RISANKIZUMAB [Suspect]
     Active Substance: RISANKIZUMAB
     Indication: Psoriasis
     Route: 058
     Dates: start: 20240520

REACTIONS (3)
  - Surgery [Recovered/Resolved]
  - COVID-19 [Unknown]
  - Eye infection [Unknown]

NARRATIVE: CASE EVENT DATE: 20240101
